FAERS Safety Report 9306246 (Version 1)
Quarter: 2013Q2

REPORT INFORMATION
  Report Type: Spontaneous
  Country: US (occurrence: None)
  Receive Date: 20130429
  Receipt Date: 20130429
  Transmission Date: 20140414
  Serious: Yes (Hospitalization)
  Sender: FDA-Public Use
  Company Number: 2012033967

PATIENT
  Age: 13 Year
  Sex: Male
  Weight: 54.43 kg

DRUGS (14)
  1. HIZENRA [Suspect]
     Indication: HYPOGAMMAGLOBULINAEMIA
     Dosage: 7GM 1X/WEEK, INFUSE VIA MULTIPLE SQ SITES USING PUMP OVER 1-2 HOURS. SUBCUTANEOUS
     Route: 058
     Dates: start: 20121112, end: 20121112
  2. HIZENRA [Suspect]
     Indication: JUVENILE IDIOPATHIC ARTHRITIS
     Dosage: 7GM 1X/WEEK, INFUSE VIA MULTIPLE SQ SITES USING PUMP OVER 1-2 HOURS. SUBCUTANEOUS
     Route: 058
     Dates: start: 20121112, end: 20121112
  3. ACETAMINOPEHN (PARACETAMOL) [Concomitant]
  4. EPI-PEN (EPINEPHRINE HYDROHLORIDE) [Concomitant]
  5. LIDOCAINE PRILOCASINE (EMLA /00675501/) [Concomitant]
  6. STEROIDS (CORTICOSTEROIDS) [Concomitant]
  7. HEPARIN (HEPARIN) [Concomitant]
  8. STERIDE WATER (SODIUM CHLORIDE) [Concomitant]
  9. LMS (LIDOCAINE) [Concomitant]
  10. SODIUM CHLORIDE [Concomitant]
  11. BACLOFEN (BACLOFEN) [Concomitant]
  12. PROGRAF (TACROLIMUS) [Concomitant]
  13. DOXEPIN (DOXEPIN) (DOXEPIN) [Concomitant]
  14. ARCALYST (FILONACEPT) (ALL OTHER THERAPEUTIC PRODUCTS) [Concomitant]

REACTIONS (1)
  - Infusion site urticaria [None]
